FAERS Safety Report 8351473-3 (Version None)
Quarter: 2012Q2

REPORT INFORMATION
  Report Type: 
  Country: None (occurrence: None)
  Receive Date: 20120510
  Receipt Date: 20120508
  Transmission Date: 20120825
  Serious: Yes (Hospitalization, Other)
  Sender: FDA-Public Use
  Company Number: US-ASTRAZENECA-2011SE32242

PATIENT
  Age: 31 Year
  Sex: Female
  Weight: 59 kg

DRUGS (7)
  1. NEXIUM [Suspect]
     Route: 048
     Dates: start: 20101206
  2. ULTRAM [Concomitant]
  3. ZANTAC [Concomitant]
  4. NEXIUM [Suspect]
     Dosage: 40 MG 1 X DAY SOMETIMES 2 X DAY WHEN NEEDED
     Route: 048
     Dates: start: 20070101
  5. NEXIUM [Suspect]
     Indication: GASTROOESOPHAGEAL REFLUX DISEASE
     Dosage: TWICE A DAY
     Route: 048
     Dates: start: 20070101
  6. ZANTAC [Concomitant]
  7. MOTRIN [Concomitant]

REACTIONS (4)
  - RADIUS FRACTURE [None]
  - JOINT INJURY [None]
  - FALL [None]
  - WRIST FRACTURE [None]
